FAERS Safety Report 21806301 (Version 1)
Quarter: 2023Q1

REPORT INFORMATION
  Report Type: Spontaneous
  Country: AT (occurrence: AT)
  Receive Date: 20230102
  Receipt Date: 20230102
  Transmission Date: 20230417
  Serious: No
  Sender: FDA-Public Use
  Company Number: AT-GLAXOSMITHKLINE-AT2022EME038508

PATIENT
  Sex: Female

DRUGS (1)
  1. BLENREP [Suspect]
     Active Substance: BELANTAMAB MAFODOTIN-BLMF
     Indication: Plasma cell myeloma
     Dosage: 2.5 MG/KG
     Dates: start: 202108

REACTIONS (2)
  - Keratopathy [Unknown]
  - Corneal defect [Unknown]
